FAERS Safety Report 9716605 (Version 2)
Quarter: 2013Q4

REPORT INFORMATION
  Report Type: Spontaneous
  Country: US (occurrence: US)
  Receive Date: 20131127
  Receipt Date: 20131210
  Transmission Date: 20140711
  Serious: No
  Sender: FDA-Public Use
  Company Number: US-PFIZER INC-2013336340

PATIENT
  Age: 47 Year
  Sex: Female
  Weight: 58.05 kg

DRUGS (8)
  1. LYRICA [Suspect]
     Indication: FIBROMYALGIA
     Dosage: 75 MG, 2X/DAY
     Dates: start: 2010
  2. LYRICA [Suspect]
     Dosage: 75 MG, 2X/DAY
     Dates: start: 2013
  3. SEROQUEL [Suspect]
     Indication: INSOMNIA
     Dosage: 50 MG, AS NEEDED
     Dates: start: 201201, end: 2013
  4. AMBIEN [Concomitant]
     Dosage: UNK
  5. TRAZODONE [Concomitant]
     Dosage: UNK
  6. PROZAC [Concomitant]
     Dosage: UNK
  7. DILTIAZEM [Concomitant]
     Dosage: UNK
  8. ZANTAC [Concomitant]
     Dosage: UNK

REACTIONS (4)
  - Weight increased [Recovering/Resolving]
  - Dry mouth [Not Recovered/Not Resolved]
  - Increased appetite [Unknown]
  - Metabolic disorder [Unknown]
